FAERS Safety Report 8402898-9 (Version None)
Quarter: 2012Q2

REPORT INFORMATION
  Report Type: 
  Country: None (occurrence: None)
  Receive Date: 20120601
  Receipt Date: 20120524
  Transmission Date: 20120825
  Serious: Yes (Death, Hospitalization)
  Sender: FDA-Public Use
  Company Number: US-GLAXOSMITHKLINE-A0933160A

PATIENT
  Age: 69 Year
  Sex: Male
  Weight: 74.5 kg

DRUGS (11)
  1. AZMACORT [Concomitant]
  2. PAXIL [Concomitant]
  3. NEXIUM [Concomitant]
  4. MAXZIDE [Concomitant]
  5. MIRAPEX [Concomitant]
  6. SYNTHROID [Concomitant]
  7. ATROVENT [Concomitant]
  8. FLOMAX [Concomitant]
  9. ALBUTEROL [Concomitant]
  10. AVANDIA [Suspect]
     Indication: TYPE 2 DIABETES MELLITUS
     Dosage: 4MG TWICE PER DAY
     Route: 048
     Dates: start: 19990812, end: 20041201
  11. TOPAMAX [Concomitant]

REACTIONS (3)
  - CEREBROVASCULAR ACCIDENT [None]
  - CARDIAC FAILURE CONGESTIVE [None]
  - MYOCARDIAL INFARCTION [None]
